FAERS Safety Report 25366367 (Version 1)
Quarter: 2025Q2

REPORT INFORMATION
  Report Type: Spontaneous
  Country: DE (occurrence: DE)
  Receive Date: 20250528
  Receipt Date: 20250528
  Transmission Date: 20250717
  Serious: Yes (Death, Hospitalization)
  Sender: ACCORD
  Company Number: None

PATIENT
  Age: 92 Year
  Sex: Female

DRUGS (9)
  1. METHOTREXATE [Interacting]
     Active Substance: METHOTREXATE
     Indication: Product used for unknown indication
     Dosage: DAILY DOSE: 7.5 MG EVERY 7 DAYS
     Dates: end: 20250308
  2. METAMIZOLE [Interacting]
     Active Substance: METAMIZOLE
     Indication: Pain management
     Dosage: DAILY DOSE: 4000 MG EVERY 1 DAY
     Dates: start: 20250308
  3. CEFAZOLIN [Concomitant]
     Active Substance: CEFAZOLIN
     Indication: Staphylococcal bacteraemia
     Dosage: DAILY DOSE: 6 G EVERY 1 DAY
     Dates: start: 20250301
  4. RIFAMPIN [Concomitant]
     Active Substance: RIFAMPIN
     Indication: Staphylococcal bacteraemia
     Dosage: DAILY DOSE: 600 MG EVERY 1 DAY
     Dates: start: 20250307
  5. PANTOPRAZOLE [Concomitant]
     Active Substance: PANTOPRAZOLE
     Dosage: DAILY DOSE: 80 MG EVERY 1 DAY
  6. FOLIC ACID [Concomitant]
     Active Substance: FOLIC ACID
     Dosage: DAILY DOSE: 5 MG EVERY 1 DAY
  7. PREDNISOLONE [Concomitant]
     Active Substance: PREDNISOLONE
     Dosage: DAILY DOSE: 5 MG EVERY 1 DAY
  8. FENTANYL [Concomitant]
     Active Substance: FENTANYL
     Dosage: DAILY DOSE: 25 UG EVERY 01:00:00
  9. PREGABALIN [Concomitant]
     Active Substance: PREGABALIN
     Dosage: DAILY DOSE: 50 MG EVERY 1 DAY

REACTIONS (5)
  - Agranulocytosis [Fatal]
  - Pancytopenia [Fatal]
  - Documented hypersensitivity to administered product [Unknown]
  - Contraindicated product administered [Unknown]
  - Labelled drug-drug interaction issue [Unknown]

NARRATIVE: CASE EVENT DATE: 20250310
